FAERS Safety Report 23047712 (Version 1)
Quarter: 2023Q4

REPORT INFORMATION
  Report Type: Spontaneous
  Country: CH (occurrence: CH)
  Receive Date: 20231010
  Receipt Date: 20231010
  Transmission Date: 20240109
  Serious: Yes (Other)
  Sender: FDA-Public Use
  Company Number: None

PATIENT
  Age: 65 Year
  Sex: Female

DRUGS (27)
  1. NUCYNTA ER [Interacting]
     Active Substance: TAPENTADOL HYDROCHLORIDE
     Indication: Product used for unknown indication
     Dosage: 50 MILLIGRAM, EVERY 12 HOURS
     Route: 048
  2. ZALDIAR [Interacting]
     Active Substance: ACETAMINOPHEN\TRAMADOL HYDROCHLORIDE
     Indication: Product used for unknown indication
     Dosage: 1 DOSAGE FORM, EVERY 6 HRS
     Route: 048
  3. METHOTREXATE SODIUM [Interacting]
     Active Substance: METHOTREXATE SODIUM
     Indication: Polyarthritis
     Dosage: 5 MILLIGRAM, 1/WEEK
     Route: 065
     Dates: start: 202207
  4. METHOTREXATE SODIUM [Interacting]
     Active Substance: METHOTREXATE SODIUM
     Dosage: UNK
     Route: 065
     Dates: start: 200509, end: 201805
  5. ALLOPURINOL [Interacting]
     Active Substance: ALLOPURINOL
     Indication: Product used for unknown indication
     Dosage: 300 MILLIGRAM, QD (1/DAY)
     Route: 048
  6. FOSAVANCE [Interacting]
     Active Substance: ALENDRONATE SODIUM\CHOLECALCIFEROL
     Indication: Product used for unknown indication
     Dosage: 1 DOSAGE FORM, 1/WEEK
     Route: 065
  7. ZINC GLUCONATE [Interacting]
     Active Substance: ZINC GLUCONATE
     Indication: Product used for unknown indication
     Dosage: 20 MILLIGRAM, 1/DAY
     Route: 048
  8. ESOMEPRAZOLE MAGNESIUM [Interacting]
     Active Substance: ESOMEPRAZOLE\ESOMEPRAZOLE MAGNESIUM\ESOMEPRAZOLE MAGNESIUM DIHYDRATE
     Indication: Product used for unknown indication
     Dosage: 40 MILLIGRAM, 1/DAY
     Route: 048
  9. PREDNISOLONE [Interacting]
     Active Substance: PREDNISOLONE
     Indication: Polyarthritis
     Dosage: 5 MILLIGRAM, 1/DAY
     Route: 048
  10. ENTOCORT [Interacting]
     Active Substance: BUDESONIDE
     Indication: Product used for unknown indication
     Dosage: 3 MILLIGRAM, EVERY 8 HRS
     Route: 048
  11. DICLOFENAC SODIUM [Interacting]
     Active Substance: DICLOFENAC\DICLOFENAC SODIUM
     Indication: Product used for unknown indication
     Dosage: 100 GRAM
     Route: 048
  12. ELIQUIS [Interacting]
     Active Substance: APIXABAN
     Indication: Thrombosis prophylaxis
     Dosage: 2.5 MILLIGRAM, 2/DAY
     Route: 048
  13. MOTILIUM [Interacting]
     Active Substance: DOMPERIDONE
     Indication: Product used for unknown indication
     Dosage: 10 MILLIGRAM, 1/DAY
     Route: 060
  14. CREON [Interacting]
     Active Substance: PANCRELIPASE AMYLASE\PANCRELIPASE LIPASE\PANCRELIPASE PROTEASE
     Indication: Product used for unknown indication
     Dosage: 1 DOSAGE FORM, 2/DAY
     Route: 048
  15. FEXOFENADINE HYDROCHLORIDE [Interacting]
     Active Substance: FEXOFENADINE HYDROCHLORIDE
     Indication: Product used for unknown indication
     Dosage: 180 MILLIGRAM, EVERY 12 HRS
     Route: 048
  16. CALCIUM CARBONATE\CHOLECALCIFEROL [Interacting]
     Active Substance: CALCIUM CARBONATE\CHOLECALCIFEROL
     Indication: Product used for unknown indication
     Dosage: 2 DOSAGE FORM, EVERY 8 HRS
     Route: 065
  17. CALCITRIOL [Interacting]
     Active Substance: CALCITRIOL
     Indication: Product used for unknown indication
     Dosage: 0.5 MICROGRAM, 1/DAY
     Route: 048
  18. CHOLECALCIFEROL [Interacting]
     Active Substance: CHOLECALCIFEROL
     Indication: Product used for unknown indication
     Dosage: 4000 INTERNATIONAL UNIT, 1/DAY
     Route: 048
  19. LEVOTHYROXINE [Concomitant]
     Active Substance: LEVOTHYROXINE
     Indication: Autoimmune thyroiditis
     Dosage: 50 MICROGRAM, 1/DAY
     Route: 065
  20. LEVOTHYROXINE [Concomitant]
     Active Substance: LEVOTHYROXINE
     Dosage: 100 MICROGRAM, 1/DAY
     Route: 065
  21. EVIT [TOCOPHEROL] [Concomitant]
     Indication: Product used for unknown indication
     Dosage: 800 INTERNATIONAL UNIT, 3/DAY
     Route: 065
  22. FRESUBIN [CAFFEINE;CARBOHYDRATES NOS;FATS NOS;FIBRE, DIETARY;MINERALS [Concomitant]
     Indication: Product used for unknown indication
     Dosage: 600 GRAM, 2/DAY
     Route: 065
  23. MAGNESIUM VITAL COMPLEX [Concomitant]
     Indication: Product used for unknown indication
     Dosage: 1.25 MILLIMOLE, 3/DAY
     Route: 065
  24. SELENASE [SELENIDE SODIUM] [Concomitant]
     Indication: Product used for unknown indication
     Dosage: 1 DOSAGE FORM, 3/WEEK
     Route: 065
  25. VITACON [CYANOCOBALAMIN] [Concomitant]
     Indication: Product used for unknown indication
     Dosage: 10 MILLIGRAM, 1/DAY
     Route: 065
  26. VITARUBIN [CYANOCOBALAMIN] [Concomitant]
     Indication: Product used for unknown indication
     Dosage: 1 MILLILITRE, 1/WEEK
     Route: 065
  27. FOLIC ACID [Concomitant]
     Active Substance: FOLIC ACID
     Indication: Product used for unknown indication
     Dosage: 5 MILLIGRAM, 2/WEEK
     Route: 065

REACTIONS (4)
  - Anaemia macrocytic [Unknown]
  - Liver disorder [Unknown]
  - Drug interaction [Unknown]
  - Overdose [Unknown]
